FAERS Safety Report 24337634 (Version 1)
Quarter: 2024Q3

REPORT INFORMATION
  Report Type: Spontaneous
  Country: JP (occurrence: JP)
  Receive Date: 20240919
  Receipt Date: 20240919
  Transmission Date: 20241017
  Serious: No
  Sender: ROCHE
  Company Number: JP-CHUGAI-2023044816

PATIENT
  Age: 80 Year
  Weight: 50.0 kg

DRUGS (1)
  1. TAMIFLU [Suspect]
     Active Substance: OSELTAMIVIR PHOSPHATE
     Indication: Product used for unknown indication
     Dosage: 225MG/DAY
     Route: 065

REACTIONS (2)
  - Abnormal behaviour [Unknown]
  - Accidental overdose [Unknown]
